FAERS Safety Report 8958915 (Version 2)
Quarter: 2012Q4

REPORT INFORMATION
  Report Type: 
  Country: BR (occurrence: BR)
  Receive Date: 20121212
  Receipt Date: 20121220
  Transmission Date: 20130627
  Serious: Yes (Disabling)
  Sender: FDA-Public Use
  Company Number: BR-B.I. PHARMACEUTICALS,INC./RIDGEFIELD-2012-BR-01361BR

PATIENT
  Sex: Male
  Weight: 48 kg

DRUGS (3)
  1. SPIRIVA RESPIMAT [Suspect]
     Indication: EMPHYSEMA
     Dosage: 5 mcg
     Route: 055
     Dates: start: 2007
  2. SERETIDE [Concomitant]
     Indication: EMPHYSEMA
  3. ALL OTHER THERAPEUTIC PRODUCTS [Concomitant]

REACTIONS (3)
  - Fatigue [Not Recovered/Not Resolved]
  - Dyspnoea [Not Recovered/Not Resolved]
  - Exercise tolerance decreased [Not Recovered/Not Resolved]
